FAERS Safety Report 12576096 (Version 2)
Quarter: 2016Q3

REPORT INFORMATION
  Report Type: Report from Study
  Country: CA (occurrence: CA)
  Receive Date: 20160720
  Receipt Date: 20160905
  Transmission Date: 20161109
  Serious: Yes (Death, Hospitalization, Other)
  Sender: FDA-Public Use
  Company Number: CA-JNJFOC-20160713068

PATIENT
  Age: 65 Year
  Sex: Male

DRUGS (1)
  1. REMICADE [Suspect]
     Active Substance: INFLIXIMAB
     Indication: CROHN^S DISEASE
     Route: 042
     Dates: start: 20080221

REACTIONS (6)
  - Fall [Unknown]
  - Product use issue [Unknown]
  - Asthenia [Not Recovered/Not Resolved]
  - Multiple organ dysfunction syndrome [Fatal]
  - Pneumonia [Unknown]
  - Off label use [Unknown]

NARRATIVE: CASE EVENT DATE: 20080221
